FAERS Safety Report 25870800 (Version 1)
Quarter: 2025Q4

REPORT INFORMATION
  Report Type: Report from Study
  Country: EU (occurrence: EU)
  Receive Date: 20251001
  Receipt Date: 20251001
  Transmission Date: 20260117
  Serious: Yes (Other)
  Sender: ROCHE
  Company Number: EU-ROCHE-10000396805

PATIENT

DRUGS (12)
  1. ATEZOLIZUMAB [Suspect]
     Active Substance: ATEZOLIZUMAB
     Indication: Hepatocellular injury
     Route: 065
  2. ATEZOLIZUMAB [Suspect]
     Active Substance: ATEZOLIZUMAB
     Indication: Cholestatic liver injury
  3. TRASTUZUMAB [Suspect]
     Active Substance: TRASTUZUMAB
     Indication: Hepatocellular injury
     Route: 065
  4. TRASTUZUMAB [Suspect]
     Active Substance: TRASTUZUMAB
     Indication: Cholestatic liver injury
  5. PERTUZUMAB [Suspect]
     Active Substance: PERTUZUMAB
     Indication: Hepatocellular injury
     Route: 065
  6. PERTUZUMAB [Suspect]
     Active Substance: PERTUZUMAB
     Indication: Cholestatic liver injury
  7. CARBOPLATIN [Suspect]
     Active Substance: CARBOPLATIN
     Indication: Hepatocellular injury
     Route: 065
  8. CARBOPLATIN [Suspect]
     Active Substance: CARBOPLATIN
     Indication: Cholestatic liver injury
  9. PEMETREXED [Suspect]
     Active Substance: PEMETREXED
     Indication: Hepatocellular injury
     Route: 065
  10. PEMETREXED [Suspect]
     Active Substance: PEMETREXED
     Indication: Cholestatic liver injury
  11. DOCETAXEL [Suspect]
     Active Substance: DOCETAXEL
     Indication: Hepatocellular injury
     Route: 065
  12. DOCETAXEL [Suspect]
     Active Substance: DOCETAXEL
     Indication: Cholestatic liver injury

REACTIONS (1)
  - Drug-induced liver injury [Unknown]
